FAERS Safety Report 5939666-3 (Version None)
Quarter: 2008Q4

REPORT INFORMATION
  Report Type: 
  Country: None (occurrence: None)
  Receive Date: 20081030
  Receipt Date: 20081030
  Transmission Date: 20090506
  Serious: Yes (Life-Threatening, Other)
  Sender: FDA-Public Use
  Company Number: None

PATIENT
  Age: 73 Year
  Sex: Male
  Weight: 92.9874 kg

DRUGS (1)
  1. ARIPIPRAZOLE [Suspect]
     Indication: COGNITIVE DISORDER
     Dosage: 5MG  EVERY MORNING PO
     Route: 048
     Dates: start: 20080222, end: 20081029

REACTIONS (5)
  - BLOOD PRESSURE INCREASED [None]
  - CONFUSIONAL STATE [None]
  - DISORIENTATION [None]
  - DIZZINESS [None]
  - FALL [None]
